FAERS Safety Report 7332461-2 (Version None)
Quarter: 2011Q1

REPORT INFORMATION
  Report Type: 
  Country: None (occurrence: None)
  Receive Date: 20110304
  Receipt Date: 20110224
  Transmission Date: 20110831
  Serious: Yes (Hospitalization)
  Sender: FDA-Public Use
  Company Number: US-BRISTOL-MYERS SQUIBB COMPANY-15562374

PATIENT
  Age: 23 Year
  Sex: Female

DRUGS (5)
  1. AMPICILLIN [Suspect]
  2. FERROUS SULFATE TAB [Suspect]
  3. BETAMETHASONE [Suspect]
     Route: 030
  4. ERYTHROMYCIN [Suspect]
  5. RANITIDINE [Suspect]

REACTIONS (7)
  - HYPOKALAEMIA [None]
  - PREMATURE BABY [None]
  - PARALYSIS [None]
  - PREMATURE RUPTURE OF MEMBRANES [None]
  - HYPOMAGNESAEMIA [None]
  - PREGNANCY [None]
  - ANAEMIA [None]
